FAERS Safety Report 16811138 (Version 1)
Quarter: 2019Q3

REPORT INFORMATION
  Report Type: Spontaneous
  Country: US (occurrence: US)
  Receive Date: 20190916
  Receipt Date: 20190916
  Transmission Date: 20191005
  Serious: Yes (Hospitalization, Other)
  Sender: FDA-Public Use
  Company Number: US-PFIZER INC-2019393730

PATIENT
  Age: 63 Year
  Sex: Female
  Weight: 70.31 kg

DRUGS (1)
  1. XELJANZ XR [Suspect]
     Active Substance: TOFACITINIB CITRATE
     Indication: RHEUMATOID ARTHRITIS
     Dosage: UNK (11 OR 11.5 MG, WHATEVER THE PILL IS)
     Dates: start: 201712

REACTIONS (8)
  - Irritable bowel syndrome [Unknown]
  - Colonic abscess [Unknown]
  - Sepsis [Unknown]
  - Tooth infection [Unknown]
  - Abdominal pain upper [Unknown]
  - Diverticulitis [Unknown]
  - Immune system disorder [Unknown]
  - Renal function test abnormal [Recovering/Resolving]

NARRATIVE: CASE EVENT DATE: 2019
